FAERS Safety Report 19068901 (Version 1)
Quarter: 2021Q1

REPORT INFORMATION
  Report Type: Spontaneous
  Country: FR (occurrence: FR)
  Receive Date: 20210329
  Receipt Date: 20210329
  Transmission Date: 20210420
  Serious: Yes (Life-Threatening)
  Sender: FDA-Public Use
  Company Number: NVSC2021FR070685

PATIENT
  Age: 14 Year
  Sex: Female
  Weight: 48 kg

DRUGS (3)
  1. DOLIPRANE [Suspect]
     Active Substance: ACETAMINOPHEN
     Indication: POISONING DELIBERATE
     Dosage: 1500 MG TOTAL
     Route: 048
     Dates: start: 20210228
  2. IBUPROFEN. [Suspect]
     Active Substance: IBUPROFEN
     Indication: POISONING DELIBERATE
     Dosage: 4000 MG TOTAL
     Route: 048
     Dates: start: 20210228
  3. SIMETHICONE (DIMETHICONE) [Suspect]
     Active Substance: DIMETHICONE
     Indication: POISONING DELIBERATE
     Dosage: UNK (INCONNUE)
     Route: 048
     Dates: start: 20210228

REACTIONS (1)
  - Altered state of consciousness [Recovered/Resolved]

NARRATIVE: CASE EVENT DATE: 20210228
